FAERS Safety Report 18377588 (Version 3)
Quarter: 2021Q1

REPORT INFORMATION
  Report Type: Report from Study
  Country: CA (occurrence: CA)
  Receive Date: 20201013
  Receipt Date: 20210208
  Transmission Date: 20210419
  Serious: Yes (Other)
  Sender: FDA-Public Use
  Company Number: CA-JNJFOC-20201007474

PATIENT
  Age: 23 Year
  Sex: Female

DRUGS (5)
  1. HYDROCORTISONE. [Concomitant]
     Active Substance: HYDROCORTISONE
     Indication: PREMEDICATION
     Route: 042
  2. STELARA [Suspect]
     Active Substance: USTEKINUMAB
     Indication: CROHN^S DISEASE
     Route: 042
  3. STELARA [Suspect]
     Active Substance: USTEKINUMAB
     Route: 058
  4. GRAVOL [Concomitant]
     Active Substance: DIMENHYDRINATE
     Indication: PREMEDICATION
     Route: 042
  5. BENADRYL [Concomitant]
     Active Substance: DIPHENHYDRAMINE HYDROCHLORIDE
     Indication: PREMEDICATION
     Route: 042

REACTIONS (13)
  - Intestinal haemorrhage [Recovered/Resolved]
  - Infusion related reaction [Recovered/Resolved]
  - Haematemesis [Not Recovered/Not Resolved]
  - Palpitations [Recovered/Resolved]
  - Abdominal pain [Not Recovered/Not Resolved]
  - Heart rate increased [Unknown]
  - Nausea [Recovered/Resolved]
  - Feeling abnormal [Unknown]
  - Urinary tract infection [Recovered/Resolved]
  - Injection related reaction [Recovered/Resolved]
  - Dysphagia [Unknown]
  - Chest discomfort [Unknown]
  - Gastrointestinal stoma complication [Not Recovered/Not Resolved]

NARRATIVE: CASE EVENT DATE: 20200922
